FAERS Safety Report 13755445 (Version 1)
Quarter: 2017Q3

REPORT INFORMATION
  Report Type: Spontaneous
  Country: US (occurrence: US)
  Receive Date: 20170714
  Receipt Date: 20170714
  Transmission Date: 20171127
  Serious: Yes (Other)
  Sender: FDA-Public Use
  Company Number: None

PATIENT
  Age: 70 Year
  Sex: Female
  Weight: 66.15 kg

DRUGS (1)
  1. CAPECITABINE. [Suspect]
     Active Substance: CAPECITABINE
     Indication: BREAST CANCER FEMALE
     Dosage: ?          OTHER DOSE:MG;?TWICE A DAY ORAL?
     Route: 048
     Dates: start: 20160921

REACTIONS (3)
  - Palmar-plantar erythrodysaesthesia syndrome [None]
  - Erythema [None]
  - Blister [None]
